FAERS Safety Report 17913388 (Version 1)
Quarter: 2020Q2

REPORT INFORMATION
  Report Type: Spontaneous
  Country: US (occurrence: US)
  Receive Date: 20200618
  Receipt Date: 20200618
  Transmission Date: 20200714
  Serious: No
  Sender: FDA-Public Use
  Company Number: US-THERAPEUTICSMD-2020TMD01903

PATIENT
  Age: 66 Year
  Sex: Female
  Weight: 55.78 kg

DRUGS (2)
  1. VITAMINS [Concomitant]
     Active Substance: VITAMINS
  2. IMVEXXY [Suspect]
     Active Substance: ESTRADIOL
     Indication: VULVOVAGINAL DRYNESS
     Dosage: 10 ?G, 2X/WEEK, AT BEDTIME
     Route: 067
     Dates: start: 202002, end: 20200416

REACTIONS (2)
  - Off label use [Recovered/Resolved]
  - Alopecia [Not Recovered/Not Resolved]

NARRATIVE: CASE EVENT DATE: 202002
